FAERS Safety Report 6563417-5 (Version None)
Quarter: 2010Q1

REPORT INFORMATION
  Report Type: 
  Country: None (occurrence: None)
  Receive Date: 20100130
  Receipt Date: 20091214
  Transmission Date: 20100710
  Serious: No
  Sender: FDA-Public Use
  Company Number: US-ABBOTT-09P-163-0615249-00

PATIENT
  Sex: Male
  Weight: 149.82 kg

DRUGS (12)
  1. HUMIRA [Suspect]
     Indication: PSORIASIS
     Dosage: STARTED WITH LOADING DOSE
     Route: 058
     Dates: start: 20090801, end: 20090901
  2. HUMIRA [Suspect]
     Route: 058
     Dates: start: 20091207, end: 20091207
  3. HUMALOG [Concomitant]
     Indication: DIABETES MELLITUS
     Dosage: 75/25 110U BID PLUS SLIDING SCALE
     Route: 058
  4. METFORMIN [Concomitant]
     Indication: DIABETES MELLITUS
     Dosage: 1000 IN AM + 1500MG IN PM
     Route: 048
  5. GLIMEPIRIDE [Concomitant]
     Indication: DIABETES MELLITUS
     Route: 048
  6. LIPITOR [Concomitant]
     Indication: BLOOD CHOLESTEROL INCREASED
     Route: 048
  7. LISINOPRIL [Concomitant]
     Indication: HYPERTENSION
     Route: 048
  8. WELLBUTRIN [Concomitant]
     Indication: DEPRESSION
     Route: 048
  9. CYMBALTA [Concomitant]
     Indication: DEPRESSION
     Route: 048
  10. RISPERDAL [Concomitant]
     Indication: DEPRESSION
     Dosage: 1/2 TAB 1 MG
     Route: 048
  11. ASPIRIN [Concomitant]
     Indication: DRUG USE FOR UNKNOWN INDICATION
     Route: 048
  12. CENTRUM SILVER [Concomitant]
     Indication: VITAMIN SUPPLEMENTATION

REACTIONS (5)
  - INFLAMMATION [None]
  - LIMB DISCOMFORT [None]
  - PSORIASIS [None]
  - SKIN FISSURES [None]
  - SKIN HAEMORRHAGE [None]
